FAERS Safety Report 5015468-X (Version None)
Quarter: 2006Q2

REPORT INFORMATION
  Report Type: 
  Country: None (occurrence: None)
  Receive Date: 20060530
  Receipt Date: 20060530
  Transmission Date: 20061013
  Serious: No
  Sender: FDA-Public Use
  Company Number: None

PATIENT
  Age: 39 Year

DRUGS (1)
  1. HYDROMORPHONE HCL [Suspect]
     Indication: HIP DISARTICULATION
     Dosage: 1MG/HR CONTINUOUS 2.5 MG IV Q 15 MIN
     Route: 042

REACTIONS (6)
  - APNOEA [None]
  - DEPRESSED LEVEL OF CONSCIOUSNESS [None]
  - LETHARGY [None]
  - OXYGEN SATURATION DECREASED [None]
  - SEDATION [None]
  - SLEEP APNOEA SYNDROME [None]
